FAERS Safety Report 21326870 (Version 1)
Quarter: 2022Q3

REPORT INFORMATION
  Report Type: Report from Study
  Country: US (occurrence: US)
  Receive Date: 20220913
  Receipt Date: 20220913
  Transmission Date: 20221026
  Serious: Yes (Death, Other)
  Sender: FDA-Public Use
  Company Number: US-BAUSCH-BL-2022-021754

PATIENT
  Age: 70 Year
  Sex: Male

DRUGS (1)
  1. XIFAXAN [Suspect]
     Active Substance: RIFAXIMIN
     Indication: Hepatic encephalopathy
     Route: 048

REACTIONS (6)
  - Death [Fatal]
  - Rib fracture [Unknown]
  - Pneumonia [Unknown]
  - Hepatic failure [Unknown]
  - Renal failure [Unknown]
  - Fall [Unknown]

NARRATIVE: CASE EVENT DATE: 20220903
